FAERS Safety Report 5723093-8 (Version None)
Quarter: 2008Q2

REPORT INFORMATION
  Report Type: 
  Country: None (occurrence: None)
  Receive Date: 20080425
  Receipt Date: 20080415
  Transmission Date: 20081010
  Serious: Yes (Hospitalization)
  Sender: FDA-Public Use
  Company Number: 2008-02439

PATIENT
  Age: 64 Year
  Sex: Male

DRUGS (6)
  1. HYDROXYCHLOROQUINE SULFATE [Suspect]
     Indication: RHEUMATOID ARTHRITIS
     Dosage: 200 MG, DAILY, ORAL
     Route: 048
     Dates: start: 20070401, end: 20070601
  2. SULFASALAZINE [Concomitant]
  3. METHOTREXATE [Concomitant]
  4. PREDNISOLONE [Concomitant]
  5. NSAID'S [Concomitant]
  6. LEFLUNOMIDE [Concomitant]

REACTIONS (1)
  - HYPOGLYCAEMIA [None]
